FAERS Safety Report 21356099 (Version 2)
Quarter: 2022Q4

REPORT INFORMATION
  Report Type: Spontaneous
  Country: US (occurrence: US)
  Receive Date: 20220920
  Receipt Date: 20221110
  Transmission Date: 20230112
  Serious: No
  Sender: FDA-Public Use
  Company Number: US-BRISTOL-MYERS SQUIBB COMPANY-2022-108918

PATIENT
  Age: 71 Year
  Sex: Female
  Weight: 76.2 kg

DRUGS (2)
  1. REVLIMID [Suspect]
     Active Substance: LENALIDOMIDE
     Indication: Plasma cell myeloma
     Dosage: 25 MG, D1-21 Q 28 DAYS
     Route: 048
     Dates: start: 20220829
  2. REVLIMID [Suspect]
     Active Substance: LENALIDOMIDE
     Dosage: 25 MG, D1-21 Q 28 DAYS
     Route: 048
     Dates: start: 20220808

REACTIONS (3)
  - Haemoglobin decreased [Recovered/Resolved]
  - Fatigue [Not Recovered/Not Resolved]
  - Pigmentation disorder [Not Recovered/Not Resolved]
